FAERS Safety Report 8688784 (Version 2)
Quarter: 2013Q4

REPORT INFORMATION
  Report Type: Spontaneous
  Country: US (occurrence: US)
  Receive Date: 20120727
  Receipt Date: 20131031
  Transmission Date: 20140711
  Serious: Yes (Hospitalization, Other)
  Sender: FDA-Public Use
  Company Number: US-009507513-1207USA010329

PATIENT
  Sex: Female

DRUGS (7)
  1. JANUVIA [Suspect]
     Route: 048
  2. REBIF [Suspect]
     Route: 058
  3. DIAMICRON MR [Suspect]
  4. EPILIM CHRONO [Concomitant]
  5. LOPRAZ [Concomitant]
  6. FLORINEF [Concomitant]
  7. SERETIDE [Concomitant]
     Route: 045

REACTIONS (7)
  - Feeling cold [Unknown]
  - Chills [Unknown]
  - Syncope [Unknown]
  - Lower respiratory tract infection [Unknown]
  - Headache [Unknown]
  - Treatment noncompliance [Unknown]
  - Cough [Unknown]
